FAERS Safety Report 8905125 (Version 1)
Quarter: 2012Q4

REPORT INFORMATION
  Report Type: 
  Country: US (occurrence: US)
  Receive Date: 20121109
  Receipt Date: 20121109
  Transmission Date: 20130627
  Serious: No
  Sender: FDA-Public Use
  Company Number: US-ASTRAZENECA-2012SE83924

PATIENT
  Sex: Female

DRUGS (2)
  1. CRESTOR [Suspect]
     Route: 048
  2. OTHER MEDICATION [Suspect]
     Route: 065

REACTIONS (2)
  - Muscle spasms [Unknown]
  - Drug dose omission [Unknown]
